FAERS Safety Report 20427475 (Version 1)
Quarter: 2022Q1

REPORT INFORMATION
  Report Type: Report from Study
  Country: US (occurrence: US)
  Receive Date: 20220204
  Receipt Date: 20220204
  Transmission Date: 20220424
  Serious: No
  Sender: FDA-Public Use
  Company Number: US-EXELIXIS-CABO-21044358

PATIENT
  Sex: Male
  Weight: 58.957 kg

DRUGS (14)
  1. CABOMETYX [Suspect]
     Active Substance: CABOZANTINIB S-MALATE
     Indication: Renal cancer
     Dosage: 20MG TABLET EVERY OTHER DAY,ALTERNATE WITH 40MG, 40MG TABLET EVERY OTHER DAY,ALTERNATE WITH 20MG
     Route: 048
     Dates: start: 20200723
  2. CABOMETYX [Suspect]
     Active Substance: CABOZANTINIB S-MALATE
     Indication: Metastases to bone
  3. CABOMETYX [Suspect]
     Active Substance: CABOZANTINIB S-MALATE
     Indication: Metastases to bone marrow
  4. ATROPINE\DIPHENOXYLATE [Concomitant]
     Active Substance: ATROPINE\DIPHENOXYLATE
  5. EUTHYROX [Concomitant]
     Active Substance: LEVOTHYROXINE SODIUM
  6. PROCHLORPERAZINE MALEATE [Concomitant]
     Active Substance: PROCHLORPERAZINE MALEATE
  7. FAMOTIDINE [Concomitant]
     Active Substance: FAMOTIDINE
  8. LISINOPRIL [Concomitant]
     Active Substance: LISINOPRIL
  9. CETIRIZINE HCL [Concomitant]
     Active Substance: CETIRIZINE HYDROCHLORIDE
  10. AMLODIPINE BESYLATE [Concomitant]
     Active Substance: AMLODIPINE BESYLATE
  11. ONDANSETRON HCL [Concomitant]
     Active Substance: ONDANSETRON HYDROCHLORIDE
  12. TRAMADOL HCL [Concomitant]
     Active Substance: TRAMADOL HYDROCHLORIDE
  13. DIAZEPAM [Concomitant]
     Active Substance: DIAZEPAM
  14. DIETARY SUPPLEMENT [Concomitant]
     Active Substance: DIETARY SUPPLEMENT

REACTIONS (7)
  - Skin exfoliation [Unknown]
  - Blister [Unknown]
  - Hyperkeratosis [Unknown]
  - Sensitive skin [Unknown]
  - Wound [Not Recovered/Not Resolved]
  - Impaired healing [Unknown]
  - Diarrhoea [Not Recovered/Not Resolved]
